FAERS Safety Report 8130596-8 (Version None)
Quarter: 2012Q1

REPORT INFORMATION
  Report Type: 
  Country: None (occurrence: None)
  Receive Date: 20120212
  Receipt Date: 20120202
  Transmission Date: 20120608
  Serious: Yes (Hospitalization)
  Sender: FDA-Public Use
  Company Number: JP-BRISTOL-MYERS SQUIBB COMPANY-16389413

PATIENT
  Age: 64 Year
  Sex: Male
  Weight: 48 kg

DRUGS (10)
  1. TS-1 [Suspect]
     Indication: GASTRIC CANCER
     Dosage: 1 DF= 120MG/BODY CYC 2 20JAN12 FORM: CAPS
     Route: 048
     Dates: start: 20111216
  2. DIFLUPREDNATE [Concomitant]
     Indication: RASH
     Dosage: 1 DF= QUANTUM LIBET, EXT. STIBRON
     Dates: start: 20120106
  3. CETUXIMAB [Suspect]
     Indication: GASTRIC CANCER
     Dosage: FORM: 5MG/ML. CYC 2 20JAN12. 25JAN12 DAY 8 OF CYC 2 RECENT ADMIN 250MG/M2
     Route: 042
     Dates: start: 20111216, end: 20120125
  4. LOCOID [Concomitant]
     Indication: RASH
     Dosage: 1 DF= QUANTUM LIBET FORM: CREAM
     Dates: start: 20111225
  5. SODIUM ALGINATE [Concomitant]
     Indication: RASH
     Dosage: BESFOTEN CREAM. 1DF = QUANTUM LIBET
     Dates: start: 20111214
  6. BETAMETHASONE [Concomitant]
     Indication: RASH
     Dosage: 1 DF= QUANTUM LIBET, EXT. RINDERON-V
     Dates: start: 20120114
  7. LANSOPRAZOLE [Concomitant]
     Indication: PROPHYLAXIS
     Route: 048
     Dates: start: 20120103
  8. CISPLATIN [Suspect]
     Indication: GASTRIC CANCER
     Dosage: ON DAY 8 OF EACH CYCLE
     Route: 042
  9. CLINDAMYCIN [Concomitant]
     Indication: RASH
     Dosage: 1 DF= QUANTUM LIBET, EXT
     Dates: start: 20111226
  10. FLUOROMETHOLONE [Concomitant]
     Indication: KERATITIS HERPETIC
     Dosage: 1 DF= QUANTUM LIBET
     Route: 047
     Dates: start: 20120111

REACTIONS (1)
  - HYPOTENSION [None]
